FAERS Safety Report 9049882 (Version 2)
Quarter: 2013Q1

REPORT INFORMATION
  Report Type: Report from Study
  Country: DE (occurrence: DE)
  Receive Date: 20130205
  Receipt Date: 20130222
  Transmission Date: 20140127
  Serious: Yes (Hospitalization, Other)
  Sender: FDA-Public Use
  Company Number: DE-ROCHE-1187676

PATIENT
  Sex: Male

DRUGS (3)
  1. RANIBIZUMAB [Suspect]
     Indication: AGE-RELATED MACULAR DEGENERATION
     Route: 050
     Dates: start: 20120621
  2. RANIBIZUMAB [Suspect]
     Dosage: DOSE: NOT REPORTED
     Route: 050
  3. RANIBIZUMAB [Suspect]
     Route: 050
     Dates: start: 20120823

REACTIONS (1)
  - Cerebrovascular accident [Unknown]
